FAERS Safety Report 7931240-2 (Version None)
Quarter: 2011Q4

REPORT INFORMATION
  Report Type: 
  Country: None (occurrence: None)
  Receive Date: 20111121
  Receipt Date: 20111110
  Transmission Date: 20120403
  Serious: Yes (Hospitalization, Other)
  Sender: FDA-Public Use
  Company Number: US-BAYER-2011-074991

PATIENT
  Sex: Female

DRUGS (4)
  1. YASMIN [Suspect]
     Dosage: UNK
     Dates: start: 20040701, end: 20050301
  2. YASMIN [Suspect]
     Dosage: UNK
     Dates: start: 20051201, end: 20060801
  3. YASMIN [Suspect]
     Indication: CONTRACEPTION
     Dosage: UNK
     Dates: start: 20030101, end: 20031001
  4. YAZ [Suspect]
     Indication: CONTRACEPTION
     Dosage: UNK
     Dates: start: 20070401, end: 20070801

REACTIONS (3)
  - CARDIAC FAILURE CONGESTIVE [None]
  - GALLBLADDER INJURY [None]
  - PANCREATIC INJURY [None]
